FAERS Safety Report 5256461-1 (Version None)
Quarter: 2007Q1

REPORT INFORMATION
  Report Type: 
  Country: None (occurrence: None)
  Receive Date: 20070306
  Receipt Date: 20070305
  Transmission Date: 20070707
  Serious: Yes (Other)
  Sender: FDA-Public Use
  Company Number: US-GLAXOSMITHKLINE-A0632530A

PATIENT
  Age: 72 Year
  Sex: Female
  Weight: 89.1 kg

DRUGS (1)
  1. REQUIP [Suspect]
     Indication: NEURALGIA
     Route: 048
     Dates: end: 20060101

REACTIONS (8)
  - CHEST DISCOMFORT [None]
  - CHOKING [None]
  - COUGH [None]
  - DRY MOUTH [None]
  - DYSPHAGIA [None]
  - LARYNGOSPASM [None]
  - MUSCLE TIGHTNESS [None]
  - SENSATION OF FOREIGN BODY [None]
